FAERS Safety Report 9118393 (Version 1)
Quarter: 2013Q1

REPORT INFORMATION
  Report Type: Spontaneous
  Country: US (occurrence: None)
  Receive Date: 20130221
  Receipt Date: 20130221
  Transmission Date: 20140127
  Serious: Yes (Congenital Anomaly, Other)
  Sender: FDA-Public Use
  Company Number: None

PATIENT
  Age: 30 Year
  Sex: Female
  Weight: 61.24 kg

DRUGS (1)
  1. MIRENA IUD [Suspect]
     Dates: start: 20081010, end: 20120318

REACTIONS (2)
  - Cytogenetic abnormality [None]
  - Trisomy 21 [None]
